FAERS Safety Report 5957426-4 (Version None)
Quarter: 2008Q4

REPORT INFORMATION
  Report Type: 
  Country: None (occurrence: None)
  Receive Date: 20081118
  Receipt Date: 20081104
  Transmission Date: 20090506
  Serious: Yes (Hospitalization)
  Sender: FDA-Public Use
  Company Number: US-GENENTECH-271581

PATIENT

DRUGS (8)
  1. BLINDED BEVACIZUMAB [Suspect]
     Indication: BREAST CANCER METASTATIC
     Dosage: UNK
     Route: 042
     Dates: start: 20080827
  2. CYCLOPHOSPHAMIDE [Suspect]
     Indication: BREAST CANCER METASTATIC
     Dosage: UNK
     Route: 042
     Dates: start: 20080827
  3. DOXORUBICIN HCL [Suspect]
     Indication: BREAST CANCER METASTATIC
     Dosage: UNK
     Route: 042
     Dates: start: 20080827
  4. PACLITAXEL [Suspect]
     Indication: BREAST CANCER METASTATIC
     Dosage: UNK
     Route: 042
     Dates: start: 20080827
  5. TRASTUZUMAB [Suspect]
     Indication: BREAST CANCER METASTATIC
     Dosage: 4 MG/KG, UNK
     Route: 042
     Dates: start: 20080827
  6. TRASTUZUMAB [Suspect]
     Dosage: 2 MG/KG, UNK
     Route: 042
  7. TAXOL [Suspect]
     Indication: BREAST CANCER METASTATIC
     Dosage: 80 MG/M2, DAYS1,8,15
     Route: 042
     Dates: start: 20080827
  8. CARBOPLATIN [Suspect]
     Indication: BREAST CANCER METASTATIC
     Dosage: 2 AUC, DAYS1,8,15
     Route: 042
     Dates: start: 20080827

REACTIONS (3)
  - BLOOD CREATININE INCREASED [None]
  - BLOOD POTASSIUM INCREASED [None]
  - DEHYDRATION [None]
